FAERS Safety Report 10950873 (Version 1)
Quarter: 2015Q1

REPORT INFORMATION
  Report Type: Spontaneous
  Country: US (occurrence: None)
  Receive Date: 20150226
  Receipt Date: 20150226
  Transmission Date: 20150721
  Serious: Yes (Other)
  Sender: FDA-Public Use
  Company Number: TPA2011A00173

PATIENT
  Age: 63 Year
  Sex: Male
  Weight: 95.26 kg

DRUGS (4)
  1. PLAVIX [Suspect]
     Active Substance: CLOPIDOGREL BISULFATE
     Indication: CARDIAC DISORDER
     Dates: end: 201006
  2. UNKNOWN CHOLESTEROL REDUCER (CHOLESTEROL- AND TRIGLYCERIDE REDUCERS) [Concomitant]
  3. UNKNOWN ANTIHYPERTENSIVES (ANTIHYPERTENSIVES) [Concomitant]
  4. PREVACID [Suspect]
     Active Substance: LANSOPRAZOLE
     Indication: GASTROOESOPHAGEAL REFLUX DISEASE
     Dosage: 1 IN 1 DAY
     Route: 048
     Dates: end: 201006

REACTIONS (1)
  - Myocardial infarction [None]

NARRATIVE: CASE EVENT DATE: 201006
